FAERS Safety Report 9410237 (Version 3)
Quarter: 2013Q3

REPORT INFORMATION
  Report Type: Report from Study
  Country: DE (occurrence: DE)
  Receive Date: 20130719
  Receipt Date: 20130920
  Transmission Date: 20140515
  Serious: Yes (Life-Threatening, Hospitalization)
  Sender: FDA-Public Use
  Company Number: DE-B.I. PHARMACEUTICALS,INC./RIDGEFIELD-2013-DE-01867DE

PATIENT
  Age: 34 Year
  Sex: Male
  Weight: 130 kg

DRUGS (2)
  1. TWYNSTA [Suspect]
     Dosage: APPROXIMATELY 90 TABLETS
     Route: 048
     Dates: start: 20130715, end: 20130715
  2. MORPHIN [Suspect]
     Dates: start: 20130715, end: 20130715

REACTIONS (9)
  - Suicide attempt [Unknown]
  - Vomiting [Unknown]
  - Hypotension [Unknown]
  - Cardiovascular insufficiency [Unknown]
  - Shock [Unknown]
  - Left ventricular failure [Unknown]
  - Pulmonary oedema [Unknown]
  - Pleural effusion [Unknown]
  - Pulmonary congestion [Unknown]
